FAERS Safety Report 10241565 (Version 2)
Quarter: 2014Q3

REPORT INFORMATION
  Report Type: Spontaneous
  Country: US (occurrence: None)
  Receive Date: 20140613
  Receipt Date: 20140804
  Transmission Date: 20150326
  Serious: Yes (Death, Hospitalization)
  Sender: FDA-Public Use
  Company Number: UNT-2014-001570

PATIENT
  Age: 75 Year
  Sex: Female
  Weight: 77.5 kg

DRUGS (9)
  1. XANAX [Concomitant]
     Active Substance: ALPRAZOLAM
  2. TYVASO [Suspect]
     Active Substance: TREPROSTINIL
     Indication: COR PULMONALE CHRONIC
     Route: 055
     Dates: start: 20110228
  3. DIGOXIN. [Concomitant]
     Active Substance: DIGOXIN
  4. GLYBURIDE (GLIBENCLAMIDE) [Concomitant]
     Active Substance: GLYBURIDE
  5. METFORMIN [Concomitant]
     Active Substance: METFORMIN HYDROCHLORIDE
  6. REMERON (MIRTAZAPINE) [Concomitant]
  7. SINEMET (CARBIDOPA, LEVODOPA) [Concomitant]
  8. BENZONATATE. [Concomitant]
     Active Substance: BENZONATATE
  9. PHENERGAN [Concomitant]
     Active Substance: PROMETHAZINE HYDROCHLORIDE

REACTIONS (5)
  - Interstitial lung disease [None]
  - Death [None]
  - Chronic respiratory failure [None]
  - Rheumatoid lung [None]
  - Pulmonary arterial hypertension [None]
